FAERS Safety Report 16058056 (Version 1)
Quarter: 2019Q1

REPORT INFORMATION
  Report Type: Spontaneous
  Country: CA (occurrence: CA)
  Receive Date: 20190311
  Receipt Date: 20190311
  Transmission Date: 20190418
  Serious: Yes (Death)
  Sender: FDA-Public Use
  Company Number: CA-PFIZER INC-2019106390

PATIENT
  Age: 63 Year
  Sex: Male
  Weight: 92 kg

DRUGS (3)
  1. BLEOMYCIN SULFATE [Suspect]
     Active Substance: BLEOMYCIN SULFATE
     Indication: NON-HODGKIN^S LYMPHOMA
     Dosage: 21 IU,  (1 EVERY 14 DAY(S))
     Route: 042
  2. DEXAMETHASONE. [Concomitant]
     Active Substance: DEXAMETHASONE
     Dosage: UNK
  3. VINCRISTINE SULFATE. [Concomitant]
     Active Substance: VINCRISTINE SULFATE
     Dosage: UNK

REACTIONS (5)
  - Endotracheal intubation [Fatal]
  - Pulmonary toxicity [Fatal]
  - Acute respiratory distress syndrome [Fatal]
  - Pneumonia [Fatal]
  - Respiratory disorder [Fatal]
